FAERS Safety Report 4367872-0 (Version None)
Quarter: 2004Q2

REPORT INFORMATION
  Report Type: 
  Country: None (occurrence: None)
  Receive Date: 20040601
  Receipt Date: 20040601
  Transmission Date: 20050107
  Serious: Yes (Other)
  Sender: FDA-Public Use
  Company Number: None

PATIENT
  Age: 65 Year
  Sex: Male
  Weight: 88.4514 kg

DRUGS (1)
  1. ZITHROMAX [Suspect]
     Indication: BRONCHITIS
     Dosage: 2 ON DAY 1 1/D FOR 4 ORAL
     Route: 048
     Dates: start: 20040521, end: 20040525

REACTIONS (2)
  - ABDOMINAL PAIN [None]
  - CONSTIPATION [None]
